FAERS Safety Report 6310765-X (Version None)
Quarter: 2009Q3

REPORT INFORMATION
  Report Type: 
  Country: None (occurrence: None)
  Receive Date: 20090811
  Receipt Date: 20090727
  Transmission Date: 20100115
  Serious: Yes (Death, Hospitalization)
  Sender: FDA-Public Use
  Company Number: 2009001405

PATIENT
  Age: 70 Year
  Sex: Female

DRUGS (3)
  1. ERLOTINIB (ERLOTINIB) (TABLET) (ERLOTINIB) [Suspect]
     Dosage: 100 MG, QD, ORAL
     Route: 048
     Dates: start: 20090312, end: 20090424
  2. GEMCITABINE [Concomitant]
  3. DURAGESIC-100 [Concomitant]

REACTIONS (3)
  - DYSPNOEA [None]
  - EMBOLIC PNEUMONIA [None]
  - RENAL FAILURE [None]
